FAERS Safety Report 26120568 (Version 1)
Quarter: 2025Q4

REPORT INFORMATION
  Report Type: Spontaneous
  Country: KR (occurrence: KR)
  Receive Date: 20251204
  Receipt Date: 20251204
  Transmission Date: 20260119
  Serious: Yes (Hospitalization)
  Sender: BOEHRINGER INGELHEIM
  Company Number: KR-BoehringerIngelheim-2025-BI-111759

PATIENT
  Sex: Male

DRUGS (1)
  1. OFEV [Suspect]
     Active Substance: NINTEDANIB
     Indication: Pulmonary fibrosis

REACTIONS (2)
  - Dyspnoea [Unknown]
  - Pyrexia [Recovered/Resolved]
